FAERS Safety Report 7570750-7 (Version None)
Quarter: 2011Q2

REPORT INFORMATION
  Report Type: 
  Country: None (occurrence: None)
  Receive Date: 20110624
  Receipt Date: 20110616
  Transmission Date: 20111010
  Serious: Yes (Death, Hospitalization, Other)
  Sender: FDA-Public Use
  Company Number: US-ELI_LILLY_AND_COMPANY-US201105006594

PATIENT
  Sex: Male
  Weight: 89.796 kg

DRUGS (7)
  1. GEMZAR [Suspect]
     Indication: LUNG NEOPLASM MALIGNANT
     Dosage: UNK, D1, 8, 15 Q23 D
     Route: 042
     Dates: start: 20101117
  2. GEMZAR [Suspect]
     Dosage: 1000 MG/M2, D1, 8, 15 Q23 D
     Route: 042
     Dates: start: 20101202, end: 20101230
  3. PROTONIX [Concomitant]
     Dosage: UNK, UNKNOWN
     Route: 065
  4. METOPROLOL TARTRATE [Concomitant]
     Dosage: UNK, UNKNOWN
     Route: 065
  5. ASPIRIN [Concomitant]
     Dosage: UNK, UNKNOWN
     Route: 065
  6. LIPITOR [Concomitant]
     Dosage: UNK, UNKNOWN
     Route: 065
  7. PROSCAR [Concomitant]
     Dosage: UNK, UNKNOWN
     Route: 065

REACTIONS (6)
  - DYSPNOEA [None]
  - DEATH [None]
  - EMBOLIC STROKE [None]
  - PULMONARY FIBROSIS [None]
  - NEOPLASM PROGRESSION [None]
  - TOXICITY TO VARIOUS AGENTS [None]
